FAERS Safety Report 9321925 (Version 2)
Quarter: 2013Q3

REPORT INFORMATION
  Report Type: Spontaneous
  Country: US (occurrence: US)
  Receive Date: 20130531
  Receipt Date: 20130909
  Transmission Date: 20140515
  Serious: Yes (Death, Hospitalization, Other)
  Sender: FDA-Public Use
  Company Number: US-PFIZER INC-2013163114

PATIENT
  Sex: Female

DRUGS (2)
  1. DILANTIN [Suspect]
     Indication: EPILEPSY
     Dosage: UNK
     Route: 042
  2. PHENYTOIN [Suspect]
     Dosage: UNK
     Route: 048

REACTIONS (4)
  - Stevens-Johnson syndrome [Fatal]
  - Cerebrovascular accident [Unknown]
  - Renal failure [Unknown]
  - Mental impairment [Unknown]
